FAERS Safety Report 17741982 (Version 2)
Quarter: 2020Q2

REPORT INFORMATION
  Report Type: Spontaneous
  Country: IT (occurrence: IT)
  Receive Date: 20200504
  Receipt Date: 20200514
  Transmission Date: 20200714
  Serious: Yes (Other)
  Sender: FDA-Public Use
  Company Number: IT-INDIVIOR US-INDV-124632-2020

PATIENT
  Age: 50 Year
  Sex: Male

DRUGS (3)
  1. QUETIAPINE FUMARATE. [Concomitant]
     Active Substance: QUETIAPINE FUMARATE
     Indication: PSYCHOTIC DISORDER
     Dosage: 300 MG, UNKNOWN
     Route: 048
  2. BUPRENORPHINE. [Suspect]
     Active Substance: BUPRENORPHINE
     Indication: MEDICATION ERROR
     Dosage: 4 MG, TOTAL
     Route: 048
     Dates: start: 20200103
  3. MIRTAZAPINE. [Concomitant]
     Active Substance: MIRTAZAPINE
     Indication: DEPRESSION
     Dosage: 300 MG, UNKNOWN
     Route: 048

REACTIONS (8)
  - Medication error [Recovering/Resolving]
  - Product use issue [Unknown]
  - Somnolence [Recovering/Resolving]
  - Salivary hypersecretion [Recovering/Resolving]
  - Muscle rigidity [Recovering/Resolving]
  - Sopor [Recovering/Resolving]
  - Overdose [Recovering/Resolving]
  - Agitation [Recovering/Resolving]

NARRATIVE: CASE EVENT DATE: 20200103
